FAERS Safety Report 6147467 (Version 2)
Quarter: 2024Q1

REPORT INFORMATION
  Report Type: Spontaneous
  Country: FR (occurrence: FR)
  Receive Date: 20061016
  Receipt Date: 20240313
  Transmission Date: 20240410
  Serious: Yes (Life-Threatening, Hospitalization, Other)
  Sender: FDA-Public Use
  Company Number: None

PATIENT
  Age: 57 Year
  Sex: Female
  Weight: 55 kg

DRUGS (3)
  1. TAXOTERE [Suspect]
     Active Substance: DOCETAXEL
     Indication: Breast cancer
     Dosage: 118 MG, QCY
     Route: 042
     Dates: start: 20041231, end: 20050419
  2. CAPECITABINE [Suspect]
     Active Substance: CAPECITABINE
     Dosage: 3160 MG, QCY
     Route: 048
     Dates: start: 20050601, end: 20060701
  3. EPIRUBICIN HYDROCHLORIDE [Suspect]
     Active Substance: EPIRUBICIN HYDROCHLORIDE
     Indication: Breast cancer
     Dosage: 118 MG, QCY
     Route: 042
     Dates: start: 20041230, end: 20050419

REACTIONS (1)
  - Acute leukaemia [Unknown]

NARRATIVE: CASE EVENT DATE: 20060801
